FAERS Safety Report 5281632-8 (Version None)
Quarter: 2007Q1

REPORT INFORMATION
  Report Type: 
  Country: None (occurrence: None)
  Receive Date: 20061215
  Receipt Date: 20051024
  Transmission Date: 20070707
  Serious: Yes (Other)
  Sender: FDA-Public Use
  Company Number: HQWYE230725OCT05

PATIENT
  Sex: Female
  Weight: 59.93 kg

DRUGS (2)
  1. EFFEXOR XR [Suspect]
     Indication: ANXIETY
     Dosage: 225 1X PER 1 DAY, ORAL
     Route: 048
     Dates: start: 20030422
  2. EFFEXOR XR [Suspect]
     Indication: DEPRESSION
     Dosage: 225 1X PER 1 DAY, ORAL
     Route: 048
     Dates: start: 20030422

REACTIONS (2)
  - ABORTION SPONTANEOUS [None]
  - DRUG EXPOSURE DURING PREGNANCY [None]
